FAERS Safety Report 4910859-7 (Version None)
Quarter: 2006Q1

REPORT INFORMATION
  Report Type: 
  Country: None (occurrence: None)
  Receive Date: 20060214
  Receipt Date: 20060206
  Transmission Date: 20060701
  Serious: Yes (Hospitalization)
  Sender: FDA-Public Use
  Company Number: DE-GLAXOSMITHKLINE-D0048673A

PATIENT
  Age: 69 Year
  Sex: Female

DRUGS (2)
  1. AVANDAMET [Suspect]
     Indication: DIABETES MELLITUS
     Dosage: 1004MG TWICE PER DAY
     Route: 048
     Dates: start: 20050501, end: 20051201
  2. ANTIHYPERTENSIVE [Concomitant]
     Route: 065
     Dates: start: 20051101

REACTIONS (5)
  - ACUTE PULMONARY OEDEMA [None]
  - ARRHYTHMIA [None]
  - CARDIAC FAILURE [None]
  - OEDEMA PERIPHERAL [None]
  - PALPITATIONS [None]
